FAERS Safety Report 4388614-9 (Version None)
Quarter: 2004Q2

REPORT INFORMATION
  Report Type: 
  Country: None (occurrence: None)
  Receive Date: 20040624
  Receipt Date: 20040615
  Transmission Date: 20050107
  Serious: Yes (Hospitalization)
  Sender: FDA-Public Use
  Company Number: DE-SHR-04-024733

PATIENT
  Age: 71 Year
  Sex: Male
  Weight: 79 kg

DRUGS (5)
  1. FLUDARA [Suspect]
     Indication: CHRONIC LYMPHOCYTIC LEUKAEMIA
     Dosage: 50 MG, 1X/DAY, INTRAVENOUS
     Route: 042
     Dates: start: 20040308, end: 20040313
  2. ANTINEOPLASTIC AGENTS () [Suspect]
     Indication: CHRONIC LYMPHOCYTIC LEUKAEMIA
     Dates: start: 20040101
  3. ENDOXAN [Concomitant]
  4. ACETYLSALICYLIC ACID SRT [Concomitant]
  5. NITREN [Concomitant]

REACTIONS (2)
  - HEPATITIS TOXIC [None]
  - JAUNDICE [None]
